FAERS Safety Report 7581712-8 (Version None)
Quarter: 2011Q2

REPORT INFORMATION
  Report Type: 
  Country: None (occurrence: None)
  Receive Date: 20110629
  Receipt Date: 20110624
  Transmission Date: 20111010
  Serious: Yes (Life-Threatening, Hospitalization)
  Sender: FDA-Public Use
  Company Number: PHHY2011GB56163

PATIENT
  Age: 53 Year
  Sex: Female

DRUGS (6)
  1. LOSARTAN POTASSIUM [Concomitant]
     Dosage: UNK UKN, UNK
  2. ACETAMINOPHEN [Concomitant]
     Dosage: UNK UKN, UNK
  3. DOXAZOSIN MESYLATE [Concomitant]
     Dosage: UNK UKN, UNK
  4. ENOXAPARIN [Concomitant]
     Dosage: UNK UKN, UNK
     Dates: start: 20110527
  5. IBUPROFEN [Suspect]
     Indication: PAIN
     Dosage: 400 MG, TID
     Route: 048
     Dates: start: 20110603, end: 20110606
  6. VANCOMYCIN [Suspect]
     Indication: CELLULITIS
     Dosage: 1 G, BID
     Dates: start: 20110529, end: 20110606

REACTIONS (5)
  - GLOMERULAR FILTRATION RATE DECREASED [None]
  - RENAL FAILURE ACUTE [None]
  - BLOOD CREATININE INCREASED [None]
  - RENAL IMPAIRMENT [None]
  - DRUG LEVEL INCREASED [None]
